FAERS Safety Report 9356941 (Version 1)
Quarter: 2013Q2

REPORT INFORMATION
  Report Type: Report from Study
  Country: FR (occurrence: FR)
  Receive Date: 20130620
  Receipt Date: 20130620
  Transmission Date: 20140414
  Serious: Yes (Life-Threatening, Hospitalization)
  Sender: FDA-Public Use
  Company Number: FR-ROCHE-1026711

PATIENT
  Age: 72 Year
  Sex: Male
  Weight: 53.5 kg

DRUGS (30)
  1. MYCOPHENOLATE MOFETIL [Suspect]
     Indication: PRODUCT USED FOR UNKNOWN INDICATION
     Dosage: DAILY
     Route: 065
     Dates: start: 20110204, end: 20111114
  2. MYCOPHENOLATE MOFETIL [Suspect]
     Route: 065
     Dates: start: 20111125
  3. DARBEPOETIN ALFA [Suspect]
     Indication: RENAL FAILURE CHRONIC
     Dosage: LAST DOSE PRIOR TO SAE 11/NOV/2011
     Route: 042
     Dates: start: 20110401
  4. AMLODIPINE [Concomitant]
     Route: 065
     Dates: start: 20100719, end: 20111114
  5. HYDROXYZINE [Concomitant]
     Route: 065
     Dates: start: 20100719, end: 20111114
  6. HYDROXYZINE [Concomitant]
     Route: 065
     Dates: start: 20101121
  7. HYDROXYZINE [Concomitant]
     Route: 065
     Dates: start: 20111125
  8. TRIMETHOPRIM + SULFA [Concomitant]
     Route: 065
     Dates: start: 20101201, end: 20111114
  9. POLYSTYRENE SULPHATE (UNK INGREDIENTS) [Concomitant]
     Dosage: PRN
     Route: 065
     Dates: start: 20110309, end: 20111114
  10. ATORVASTATIN [Concomitant]
     Route: 065
     Dates: start: 20100719, end: 20111114
  11. LIDOCAINE - PRILOCAINE [Concomitant]
     Dosage: 3/W
     Route: 065
     Dates: start: 20101115
  12. CHOLECALCIFEROL [Concomitant]
     Dosage: 200000/3M
     Route: 065
     Dates: start: 20110125
  13. PREDNISONE [Concomitant]
     Route: 065
     Dates: start: 20030502
  14. PREDNISONE [Concomitant]
     Route: 065
     Dates: start: 20100719, end: 20101214
  15. PREDNISONE [Concomitant]
     Route: 065
     Dates: start: 20111125
  16. PARACETAMOL [Concomitant]
     Dosage: PRN
     Route: 065
     Dates: start: 20100728
  17. ACETYLSALICYLIC ACID [Concomitant]
     Dosage: 75 DAILY
     Route: 065
     Dates: start: 20100420, end: 20111114
  18. LANSOPRAZOLE [Concomitant]
     Dosage: 30 DAILY
     Route: 065
     Dates: start: 20101019, end: 20111114
  19. LEVOTHYROXINE SODIUM [Concomitant]
     Dosage: 125 DAILY
     Route: 065
     Dates: start: 20030502
  20. LEVOTHYROXINE SODIUM [Concomitant]
     Route: 065
     Dates: start: 20110331
  21. METOCLOPRAMIDE [Concomitant]
     Dosage: 10 DAIY
     Route: 065
     Dates: start: 20110725, end: 20111114
  22. PLASMA PHERESIS [Concomitant]
     Route: 065
     Dates: start: 20101007, end: 20111104
  23. RITUXIMAB [Concomitant]
     Route: 065
     Dates: start: 20101008
  24. BETAMETHASONE [Concomitant]
     Dosage: BETAMETAZONE LOCAL TOPIC.
     Route: 065
     Dates: start: 20110218, end: 20111114
  25. ESOMEPRAZOLE [Concomitant]
     Route: 065
     Dates: start: 20101126
  26. ESOMEPRAZOLE [Concomitant]
     Route: 065
     Dates: start: 20111127
  27. LACTULOSE [Concomitant]
     Dosage: 2 BAGS/D
     Route: 065
     Dates: start: 20111205
  28. LACTULOSE [Concomitant]
     Route: 065
     Dates: start: 20111215, end: 20120503
  29. CEFTRIAXONE [Concomitant]
     Route: 065
     Dates: start: 20111117
  30. OFLOXACIN [Concomitant]
     Dosage: DAILY
     Route: 065
     Dates: start: 20111117, end: 20111128

REACTIONS (4)
  - Ischaemic cardiomyopathy [Not Recovered/Not Resolved]
  - Malnutrition [Recovered/Resolved]
  - Adrenal insufficiency [Recovered/Resolved]
  - Diarrhoea [Unknown]
